FAERS Safety Report 9017800 (Version 3)
Quarter: 2013Q4

REPORT INFORMATION
  Report Type: Spontaneous
  Country: US (occurrence: US)
  Receive Date: 20130118
  Receipt Date: 20131227
  Transmission Date: 20140711
  Serious: Yes (Hospitalization, Other)
  Sender: FDA-Public Use
  Company Number: US-BIOGENIDEC-2013BI003584

PATIENT
  Age: 61 Year
  Sex: Female

DRUGS (3)
  1. AVONEX [Suspect]
     Indication: MULTIPLE SCLEROSIS
     Route: 030
     Dates: start: 20010426
  2. AVONEX [Suspect]
     Indication: MULTIPLE SCLEROSIS
     Route: 030
     Dates: start: 200306
  3. AVONEX [Suspect]
     Indication: MULTIPLE SCLEROSIS
     Route: 030

REACTIONS (10)
  - Breast abscess [Not Recovered/Not Resolved]
  - Breast cellulitis [Not Recovered/Not Resolved]
  - Staphylococcal skin infection [Not Recovered/Not Resolved]
  - Wound infection [Unknown]
  - Wound [Unknown]
  - Thrombosis [Unknown]
  - Post procedural infection [Recovered/Resolved]
  - Breast prosthesis removal [Recovered/Resolved]
  - Urinary tract infection [Unknown]
  - Pain in extremity [Unknown]
